FAERS Safety Report 8307577-4 (Version None)
Quarter: 2012Q2

REPORT INFORMATION
  Report Type: 
  Country: None (occurrence: None)
  Receive Date: 20120424
  Receipt Date: 20120418
  Transmission Date: 20120825
  Serious: Yes (Death, Hospitalization)
  Sender: FDA-Public Use
  Company Number: US-GENZYME-CLOF-1002103

PATIENT
  Sex: Female
  Weight: 41.7 kg

DRUGS (38)
  1. PROMETHAZINE [Concomitant]
     Indication: ANTIEMETIC SUPPORTIVE CARE
     Dosage: 10 MG, QID
     Route: 065
  2. VINORELBINE [Concomitant]
     Dosage: 20 MG/M2 (26 MG), ONCE
     Route: 042
     Dates: start: 20120107, end: 20120107
  3. ZOSYN [Concomitant]
     Indication: PRODUCT USED FOR UNKNOWN INDICATION
     Dosage: UNK
     Route: 065
     Dates: start: 20111225
  4. LINEZOLID [Concomitant]
     Indication: PRODUCT USED FOR UNKNOWN INDICATION
     Dosage: UNK
     Route: 065
     Dates: start: 20111225
  5. AMPHOJEL [Concomitant]
     Indication: PRODUCT USED FOR UNKNOWN INDICATION
     Dosage: UNK
     Route: 065
     Dates: start: 20111226, end: 20111228
  6. MEROPENEM [Concomitant]
     Indication: PRODUCT USED FOR UNKNOWN INDICATION
     Dosage: UNK
     Route: 065
     Dates: start: 20120103, end: 20120106
  7. NYSTATIN [Concomitant]
     Indication: PRODUCT USED FOR UNKNOWN INDICATION
     Dosage: UNK
     Route: 065
     Dates: start: 20120104
  8. NORVASC [Concomitant]
     Indication: PRODUCT USED FOR UNKNOWN INDICATION
     Dosage: UNK
     Route: 065
  9. OCTREOTIDE ACETATE [Concomitant]
     Dosage: 4 MCG/KG, Q1HR
     Route: 065
     Dates: start: 20120205
  10. DEXAMETHASONE [Concomitant]
     Indication: ACUTE LYMPHOCYTIC LEUKAEMIA
     Dosage: 15 MG/M2 (20 MG), TID
     Route: 042
     Dates: start: 20111227, end: 20111227
  11. VINORELBINE [Concomitant]
     Dosage: 20 MG/M2 (26 MG), ONCE
     Route: 042
     Dates: start: 20111231, end: 20111231
  12. CAPHOSOL [Concomitant]
     Indication: PRODUCT USED FOR UNKNOWN INDICATION
     Dosage: UNK
     Route: 065
     Dates: start: 20120104
  13. VINORELBINE [Concomitant]
     Indication: ACUTE LYMPHOCYTIC LEUKAEMIA
     Dosage: 20 MG/M2 (26 MG), ONCE
     Route: 042
     Dates: start: 20111224, end: 20111224
  14. PEPCID [Concomitant]
     Indication: PRODUCT USED FOR UNKNOWN INDICATION
     Dosage: UNK
     Route: 065
     Dates: start: 20120104
  15. ZOLOFT [Concomitant]
     Indication: PRODUCT USED FOR UNKNOWN INDICATION
     Dosage: 25 MG, QD
     Route: 048
     Dates: end: 20120117
  16. BACTRIM [Concomitant]
     Indication: PRODUCT USED FOR UNKNOWN INDICATION
     Dosage: UNK
     Route: 065
  17. CASPOFUNGIN ACETATE [Concomitant]
     Indication: PRODUCT USED FOR UNKNOWN INDICATION
     Dosage: UNK
     Route: 065
  18. THIOTEPA [Concomitant]
     Indication: ACUTE LYMPHOCYTIC LEUKAEMIA
     Dosage: 15 MG/M2 (20 MG), ONCE
     Route: 042
     Dates: start: 20111226, end: 20111226
  19. RED BLOOD CELLS, CONCENTRATED [Concomitant]
     Indication: PRODUCT USED FOR UNKNOWN INDICATION
     Dosage: UNK
     Route: 065
     Dates: start: 20111226
  20. PLATELETS [Concomitant]
     Indication: PRODUCT USED FOR UNKNOWN INDICATION
     Dosage: UNK
     Route: 065
     Dates: start: 20111226
  21. ALLOPURINOL [Concomitant]
     Indication: PRODUCT USED FOR UNKNOWN INDICATION
     Dosage: UNK
     Route: 065
     Dates: start: 20111226, end: 20111228
  22. ACYCLOVIR [Concomitant]
     Indication: PRODUCT USED FOR UNKNOWN INDICATION
     Dosage: UNK
     Route: 065
     Dates: start: 20111230
  23. SOLUTIONS FOR PARENTERAL NUTRITION [Concomitant]
     Indication: PRODUCT USED FOR UNKNOWN INDICATION
     Dosage: UNK
     Route: 042
  24. OXYCODONE HCL [Concomitant]
     Indication: PRODUCT USED FOR UNKNOWN INDICATION
     Dosage: 2.5 MG, PRN
     Route: 048
  25. CLOLAR [Suspect]
     Indication: ACUTE LYMPHOCYTIC LEUKAEMIA
     Dosage: 40 MG/M2 (52 MG), QDX5
     Route: 042
     Dates: start: 20111227, end: 20120101
  26. NEUPOGEN [Concomitant]
     Indication: ACUTE LYMPHOCYTIC LEUKAEMIA
     Dosage: 5 MCG/KG (205 MCG), QD
     Route: 058
     Dates: start: 20120101, end: 20120204
  27. ONDANSETRON [Concomitant]
     Indication: ANTIEMETIC SUPPORTIVE CARE
     Dosage: 19 MG, QD
     Route: 042
     Dates: start: 20111224, end: 20120101
  28. LORAZEPAM [Concomitant]
     Indication: ANTIEMETIC SUPPORTIVE CARE
     Dosage: 0.5 MG, QID
     Route: 042
  29. ZITHROMAX [Concomitant]
     Indication: PRODUCT USED FOR UNKNOWN INDICATION
     Dosage: UNK
     Route: 065
     Dates: start: 20111225
  30. VFEND [Concomitant]
     Indication: PRODUCT USED FOR UNKNOWN INDICATION
     Dosage: UNK
     Route: 065
     Dates: start: 20111230
  31. VANCOMYCIN [Concomitant]
     Indication: PRODUCT USED FOR UNKNOWN INDICATION
     Dosage: UNK
     Route: 065
     Dates: end: 20120112
  32. OCTREOTIDE ACETATE [Concomitant]
     Indication: PRODUCT USED FOR UNKNOWN INDICATION
     Dosage: 3 MCG/KG, Q1HR
     Route: 065
     Dates: start: 20120204, end: 20120204
  33. TOPOTECAN [Concomitant]
     Indication: ACUTE LYMPHOCYTIC LEUKAEMIA
     Dosage: 1 MG/M2 (1.3 MG), QD
     Route: 042
     Dates: start: 20111224, end: 20111228
  34. CEFEPIME [Concomitant]
     Indication: PRODUCT USED FOR UNKNOWN INDICATION
     Dosage: UNK
     Route: 065
     Dates: end: 20120110
  35. IMODIUM [Concomitant]
     Dosage: 1 DF, QID
     Route: 065
  36. DEXAMETHASONE [Concomitant]
     Dosage: UNK
     Route: 065
     Dates: start: 20120102, end: 20120107
  37. D5 1/2 NS + KCL 20 MEQ/L [Concomitant]
     Indication: FLUID REPLACEMENT
     Dosage: 80 ML, Q1HR
     Route: 042
  38. IMODIUM [Concomitant]
     Indication: PRODUCT USED FOR UNKNOWN INDICATION
     Dosage: 1 DF, TID
     Route: 065

REACTIONS (16)
  - DIARRHOEA [None]
  - STOMATITIS [None]
  - SWELLING FACE [None]
  - ACUTE LYMPHOCYTIC LEUKAEMIA [None]
  - NAUSEA [None]
  - VOMITING [None]
  - SKIN DISCOLOURATION [None]
  - HAEMATEMESIS [None]
  - BLOOD PRESSURE INCREASED [None]
  - ORAL CANDIDIASIS [None]
  - PYREXIA [None]
  - EPISTAXIS [None]
  - SKIN EXFOLIATION [None]
  - RENAL FAILURE [None]
  - PAIN IN EXTREMITY [None]
  - CONTUSION [None]
